FAERS Safety Report 24202945 (Version 2)
Quarter: 2024Q3

REPORT INFORMATION
  Report Type: Spontaneous
  Country: IT (occurrence: IT)
  Receive Date: 20240813
  Receipt Date: 20240830
  Transmission Date: 20241016
  Serious: Yes (Other)
  Sender: MIRUM PHARMACEUTICALS
  Company Number: IT-MIRUM PHARMACEUTICALS INTERNATIONAL B.V.-IT-MIR-24-00601

PATIENT

DRUGS (2)
  1. LIVMARLI [Suspect]
     Active Substance: MARALIXIBAT CHLORIDE
     Indication: Cholestatic pruritus
     Dosage: 380 MICROGRAM/KILOGRAM
     Route: 048
     Dates: start: 202405, end: 20240618
  2. LIVMARLI [Suspect]
     Active Substance: MARALIXIBAT CHLORIDE
     Indication: Alagille syndrome
     Dosage: 190 MICROGRAM/KILOGRAM
     Route: 048
     Dates: start: 20240510, end: 202405

REACTIONS (2)
  - Aspartate aminotransferase increased [Unknown]
  - Alanine aminotransferase increased [Unknown]

NARRATIVE: CASE EVENT DATE: 20240101
